FAERS Safety Report 7153748-2 (Version None)
Quarter: 2010Q4

REPORT INFORMATION
  Report Type: 
  Country: None (occurrence: None)
  Receive Date: 20101130
  Receipt Date: 20101115
  Transmission Date: 20110411
  Serious: Yes (Hospitalization)
  Sender: FDA-Public Use
  Company Number: 2010-3989

PATIENT
  Sex: Male

DRUGS (1)
  1. DYSPORT [Suspect]
     Indication: MUSCLE SPASTICITY
     Dosage: 2000 UNITS (2000 UNITS,SINGLE CYCLE)

REACTIONS (1)
  - HOSPITALISATION [None]
